FAERS Safety Report 6985215-0 (Version None)
Quarter: 2010Q3

REPORT INFORMATION
  Report Type: 
  Country: None (occurrence: None)
  Receive Date: 20100913
  Receipt Date: 20100902
  Transmission Date: 20110219
  Serious: Yes (Other)
  Sender: FDA-Public Use
  Company Number: 1000016072

PATIENT
  Age: 22 Year
  Sex: Female

DRUGS (4)
  1. LEXAPRO [Suspect]
     Dates: start: 20070101
  2. ZOLPIDEM [Suspect]
     Indication: SLEEP DISORDER
     Dates: start: 20080101
  3. SEROQUEL [Suspect]
     Dates: start: 20070101
  4. THYROID MEDICATION NOS [Concomitant]

REACTIONS (4)
  - HAND FRACTURE [None]
  - ROAD TRAFFIC ACCIDENT [None]
  - SLEEP-RELATED EATING DISORDER [None]
  - SOMNAMBULISM [None]
